FAERS Safety Report 25577100 (Version 1)
Quarter: 2025Q3

REPORT INFORMATION
  Report Type: Spontaneous
  Country: US (occurrence: None)
  Receive Date: 20250717
  Receipt Date: 20250717
  Transmission Date: 20251020
  Serious: Yes (unspecified)
  Sender: FDA-CTU
  Company Number: None

PATIENT
  Age: 7 Year
  Sex: Male

DRUGS (3)
  1. DUPIXENT [Suspect]
     Active Substance: DUPILUMAB
     Route: 058
     Dates: start: 20220317, end: 20250715
  2. cetirizine 1mg/mL solution 5mL daily [Concomitant]
  3. diphenhydramine 12.5mg/5mL PRN 5mL allergies or eczema [Concomitant]

REACTIONS (4)
  - Urticaria [None]
  - Therapy cessation [None]
  - Documented hypersensitivity to administered product [None]
  - Product formulation issue [None]

NARRATIVE: CASE EVENT DATE: 20250714
